FAERS Safety Report 25248577 (Version 1)
Quarter: 2025Q2

REPORT INFORMATION
  Report Type: Spontaneous
  Country: CN (occurrence: CN)
  Receive Date: 20250429
  Receipt Date: 20250429
  Transmission Date: 20250716
  Serious: Yes (Hospitalization)
  Sender: CATALYST PHARMA
  Company Number: CN-CATALYSTPHARMACEUTICALPARTNERS-CN-CATA-25-00592

PATIENT
  Sex: Female

DRUGS (1)
  1. PERAMPANEL [Suspect]
     Active Substance: PERAMPANEL
     Indication: Epilepsy
     Dosage: (1 DOSAGE FORM, 1 IN 1 DAY)
     Route: 048
     Dates: start: 20240905, end: 20250210

REACTIONS (1)
  - Drug eruption [Recovering/Resolving]

NARRATIVE: CASE EVENT DATE: 20250101
